FAERS Safety Report 4393227-9 (Version None)
Quarter: 2004Q3

REPORT INFORMATION
  Report Type: 
  Country: None (occurrence: None)
  Receive Date: 20040702
  Receipt Date: 20040625
  Transmission Date: 20050211
  Serious: Yes (Other)
  Sender: FDA-Public Use
  Company Number: US-JNJFOC-20040607730

PATIENT
  Age: 64 Year
  Sex: Male

DRUGS (6)
  1. REMINYL [Suspect]
     Indication: DEMENTIA ALZHEIMER'S TYPE
     Dosage: 8 MG, 2 IN 1 D, ORAL
     Route: 048
     Dates: start: 20030101
  2. PREVACID [Concomitant]
  3. PROZAC [Concomitant]
  4. HYDROCHLOROTHIAZIDE [Concomitant]
  5. ADVAIR (SERETIDE MITE) [Concomitant]
  6. BENAZEPRIL HCL [Concomitant]

REACTIONS (10)
  - ABNORMAL BEHAVIOUR [None]
  - COMA [None]
  - DEPRESSION [None]
  - DERMATITIS [None]
  - FLUSHING [None]
  - HEADACHE [None]
  - MYDRIASIS [None]
  - POST PROCEDURAL PAIN [None]
  - SHOULDER OPERATION [None]
  - TREMOR [None]
